FAERS Safety Report 13650007 (Version 1)
Quarter: 2017Q2

REPORT INFORMATION
  Report Type: Spontaneous
  Country: US (occurrence: US)
  Receive Date: 20170614
  Receipt Date: 20170614
  Transmission Date: 20170830
  Serious: Yes (Life-Threatening, Other)
  Sender: FDA-Public Use
  Company Number: US-ORION CORPORATION ORION PHARMA-17_00002414

PATIENT
  Age: 74 Year
  Sex: Female

DRUGS (12)
  1. DEXTROSE. [Suspect]
     Active Substance: DEXTROSE
     Route: 042
  2. POTASSIUM CHLORIDE. [Suspect]
     Active Substance: POTASSIUM CHLORIDE
     Route: 065
  3. SIMVASTATIN. [Concomitant]
     Active Substance: SIMVASTATIN
     Route: 065
  4. SPIRONOLACTONE. [Suspect]
     Active Substance: SPIRONOLACTONE
     Route: 065
  5. NPH INSULIN [Concomitant]
     Active Substance: INSULIN BEEF
     Dosage: 55 UNITS (U) IN THE MORNING AND 35U NIGHTLY
     Route: 065
  6. INSULIN [Concomitant]
     Active Substance: INSULIN NOS
     Route: 065
  7. BUMETANIDE. [Concomitant]
     Active Substance: BUMETANIDE
     Route: 065
  8. DEXTROSE. [Suspect]
     Active Substance: DEXTROSE
     Indication: HYPOGLYCAEMIA
     Route: 042
  9. ASPIRIN. [Concomitant]
     Active Substance: ASPIRIN
     Route: 065
  10. CARVEDILOL. [Concomitant]
     Active Substance: CARVEDILOL
     Route: 065
  11. METOLAZONE. [Concomitant]
     Active Substance: METOLAZONE
     Route: 065
  12. PAROXETINE. [Concomitant]
     Active Substance: PAROXETINE
     Route: 065

REACTIONS (3)
  - Blood aldosterone abnormal [Unknown]
  - Cardiac arrest [Recovered/Resolved]
  - Hyperkalaemia [Unknown]
